FAERS Safety Report 4751118-5 (Version None)
Quarter: 2005Q3

REPORT INFORMATION
  Report Type: 
  Country: None (occurrence: None)
  Receive Date: 20050822
  Receipt Date: 20050810
  Transmission Date: 20060218
  Serious: Yes (Other)
  Sender: FDA-Public Use
  Company Number: 2005114726

PATIENT
  Age: 36 Year
  Sex: Male

DRUGS (2)
  1. ZOLOFT [Suspect]
     Indication: DISTURBANCE IN ATTENTION
     Dosage: 50 MG (50 MG, 1 IN 1 D)
  2. PRILOSEC [Concomitant]

REACTIONS (2)
  - DRUG DEPENDENCE [None]
  - DRUG WITHDRAWAL SYNDROME [None]
